FAERS Safety Report 24394322 (Version 1)
Quarter: 2024Q4

REPORT INFORMATION
  Report Type: Spontaneous
  Country: CA (occurrence: CA)
  Receive Date: 20241004
  Receipt Date: 20241004
  Transmission Date: 20250115
  Serious: Yes (Other)
  Sender: ALEXION PHARMACEUTICALS
  Company Number: CA-AstraZeneca-CH-00711805A

PATIENT
  Age: 41 Year

DRUGS (14)
  1. QUETIAPINE FUMARATE [Suspect]
     Active Substance: QUETIAPINE FUMARATE
     Indication: Antipsychotic therapy
     Dosage: 300 MILLIGRAM, QD
     Route: 065
  2. QUETIAPINE FUMARATE [Suspect]
     Active Substance: QUETIAPINE FUMARATE
     Dosage: 300 MILLIGRAM, QD
  3. QUETIAPINE FUMARATE [Suspect]
     Active Substance: QUETIAPINE FUMARATE
     Dosage: 300 MILLIGRAM, QD
     Route: 065
  4. QUETIAPINE FUMARATE [Suspect]
     Active Substance: QUETIAPINE FUMARATE
     Dosage: 300 MILLIGRAM, QD
  5. BACLOFEN [Concomitant]
     Active Substance: BACLOFEN
  6. BACLOFEN [Concomitant]
     Active Substance: BACLOFEN
     Route: 065
  7. KETAMINE [Concomitant]
     Active Substance: KETAMINE
  8. KETAMINE [Concomitant]
     Active Substance: KETAMINE
     Route: 065
  9. LORAZEPAM [Concomitant]
     Active Substance: LORAZEPAM
  10. LORAZEPAM [Concomitant]
     Active Substance: LORAZEPAM
     Route: 065
  11. SUMATRIPTAN [Concomitant]
     Active Substance: SUMATRIPTAN
  12. SUMATRIPTAN [Concomitant]
     Active Substance: SUMATRIPTAN
     Route: 065
  13. ZOPICLONE [Concomitant]
     Active Substance: ZOPICLONE
  14. ZOPICLONE [Concomitant]
     Active Substance: ZOPICLONE
     Route: 065

REACTIONS (2)
  - Metabolic disorder [Recovered/Resolved]
  - Obesity [Recovered/Resolved]
